FAERS Safety Report 4968810-X (Version None)
Quarter: 2006Q2

REPORT INFORMATION
  Report Type: 
  Country: None (occurrence: None)
  Receive Date: 20060411
  Receipt Date: 20060324
  Transmission Date: 20061013
  Serious: Yes (Disabling)
  Sender: FDA-Public Use
  Company Number: CN-GLAXOSMITHKLINE-B0417546A

PATIENT
  Age: 5 Year
  Sex: Male

DRUGS (1)
  1. FLIXOTIDE [Suspect]
     Indication: ASTHMA
     Dates: start: 20040101

REACTIONS (5)
  - EYE PAIN [None]
  - GLAUCOMA [None]
  - HEADACHE [None]
  - RHINORRHOEA [None]
  - SNEEZING [None]
